FAERS Safety Report 17850843 (Version 1)
Quarter: 2020Q2

REPORT INFORMATION
  Report Type: Spontaneous
  Country: US (occurrence: US)
  Receive Date: 20200602
  Receipt Date: 20200602
  Transmission Date: 20200714
  Serious: Yes (Hospitalization, Disabling, Other)
  Sender: FDA-Public Use
  Company Number: None

PATIENT
  Age: 61 Year
  Sex: Female
  Weight: 58.4 kg

DRUGS (2)
  1. VANCOMYCIN [Concomitant]
     Active Substance: VANCOMYCIN
     Dates: start: 20200516, end: 20200518
  2. REMDESIVIR. [Suspect]
     Active Substance: REMDESIVIR
     Indication: COVID-19
     Route: 051
     Dates: start: 20200517, end: 20200521

REACTIONS (5)
  - Urine output decreased [None]
  - Acute kidney injury [None]
  - Blood creatinine increased [None]
  - Haemodialysis [None]
  - Blood urea increased [None]

NARRATIVE: CASE EVENT DATE: 20200525
